FAERS Safety Report 14873151 (Version 1)
Quarter: 2018Q2

REPORT INFORMATION
  Report Type: Spontaneous
  Country: US (occurrence: US)
  Receive Date: 20180424
  Receipt Date: 20180424
  Transmission Date: 20180711
  Serious: Yes (Other)
  Sender: FDA-Public Use
  Company Number: None

PATIENT
  Age: 42 Year
  Sex: Male
  Weight: 65.25 kg

DRUGS (6)
  1. TURMERIC SUPREME [Concomitant]
  2. COQ10 [Concomitant]
     Active Substance: UBIDECARENONE
  3. TACROLIMUS. [Concomitant]
     Active Substance: TACROLIMUS
  4. PROTONIX [Suspect]
     Active Substance: PANTOPRAZOLE SODIUM
     Indication: GASTROOESOPHAGEAL REFLUX DISEASE
     Dosage: ?          QUANTITY:1 TABLET(S);?
     Route: 048
  5. ATORVASTATIN [Concomitant]
     Active Substance: ATORVASTATIN
  6. VITAMIN D [Concomitant]
     Active Substance: CHOLECALCIFEROL

REACTIONS (4)
  - Pseudomonas infection [None]
  - Pneumonia [None]
  - Lung abscess [None]
  - Pulmonary necrosis [None]

NARRATIVE: CASE EVENT DATE: 20090311
